FAERS Safety Report 11996588 (Version 1)
Quarter: 2016Q1

REPORT INFORMATION
  Report Type: Report from Study
  Country: US (occurrence: US)
  Receive Date: 20160203
  Receipt Date: 20160203
  Transmission Date: 20160526
  Serious: Yes (Death, Other)
  Sender: FDA-Public Use
  Company Number: US-GILEAD-2016-0196046

PATIENT
  Age: 88 Year
  Sex: Female

DRUGS (12)
  1. LASIX [Concomitant]
     Active Substance: FUROSEMIDE
  2. GLUCOSAMINE [Concomitant]
     Active Substance: GLUCOSAMINE
  3. SYNTHROID [Concomitant]
     Active Substance: LEVOTHYROXINE SODIUM
  4. PROAIR                             /00972202/ [Concomitant]
     Active Substance: FLUTICASONE PROPIONATE
  5. LUMIGAN [Concomitant]
     Active Substance: BIMATOPROST
  6. FISH OIL [Concomitant]
     Active Substance: FISH OIL
  7. ASMANEX [Concomitant]
     Active Substance: MOMETASONE FUROATE
  8. DILTIAZEM [Concomitant]
     Active Substance: DILTIAZEM
  9. VITAMIN C [Concomitant]
     Active Substance: ASCORBIC ACID
  10. ELIQUIS [Concomitant]
     Active Substance: APIXABAN
  11. METOPROLOL. [Concomitant]
     Active Substance: METOPROLOL
  12. AMBRISENTAN [Suspect]
     Active Substance: AMBRISENTAN
     Indication: PULMONARY HYPERTENSION
     Dosage: 10 MG, QD
     Route: 065
     Dates: start: 20140307, end: 20160128

REACTIONS (1)
  - Death [Fatal]

NARRATIVE: CASE EVENT DATE: 20160128
